FAERS Safety Report 26001755 (Version 1)
Quarter: 2025Q4

REPORT INFORMATION
  Report Type: Spontaneous
  Country: CA (occurrence: CA)
  Receive Date: 20251105
  Receipt Date: 20251105
  Transmission Date: 20260117
  Serious: Yes (Disabling)
  Sender: NOVO NORDISK
  Company Number: CA-NOVOPROD-1551632

PATIENT
  Age: 38 Year
  Sex: Male
  Weight: 122.45 kg

DRUGS (1)
  1. TRESIBA [Suspect]
     Active Substance: INSULIN DEGLUDEC
     Indication: Product used for unknown indication
     Dosage: UNK

REACTIONS (5)
  - Disability [Unknown]
  - Illness [Unknown]
  - Blood glucose abnormal [Unknown]
  - Product leakage [Unknown]
  - Product physical issue [Unknown]
